FAERS Safety Report 25985788 (Version 1)
Quarter: 2025Q4

REPORT INFORMATION
  Report Type: Spontaneous
  Country: US (occurrence: US)
  Receive Date: 20251031
  Receipt Date: 20251031
  Transmission Date: 20260117
  Serious: Yes (Other)
  Sender: NOVO NORDISK
  Company Number: US-NOVOPROD-1547845

PATIENT
  Age: 37 Year
  Sex: Female

DRUGS (2)
  1. WEGOVY [Suspect]
     Active Substance: SEMAGLUTIDE
     Indication: Hypertension
     Dosage: 0.5 MG, QW
     Route: 058
     Dates: start: 20251011
  2. WEGOVY [Suspect]
     Active Substance: SEMAGLUTIDE
     Indication: Overweight
     Dosage: 0.25 MG, QW
     Route: 058
     Dates: start: 20250913

REACTIONS (1)
  - Fracture infection [Recovering/Resolving]

NARRATIVE: CASE EVENT DATE: 20251011
